FAERS Safety Report 7953402-0 (Version None)
Quarter: 2011Q4

REPORT INFORMATION
  Report Type: 
  Country: None (occurrence: None)
  Receive Date: 20111202
  Receipt Date: 20111119
  Transmission Date: 20120403
  Serious: Yes (Hospitalization)
  Sender: FDA-Public Use
  Company Number: US-PAR PHARMACEUTICAL, INC-2011SCPR003434

PATIENT

DRUGS (3)
  1. ALCOHOL [Suspect]
     Indication: PRODUCT USED FOR UNKNOWN INDICATION
     Dosage: 2 L OF VODKA ON THE DAY OF ADVERES REACTION, UNKNOWN
     Route: 048
  2. NALTREXONE HYDROCHLORIDE [Concomitant]
     Indication: ALCOHOLISM
     Dosage: UNK, UNKNOWN
     Route: 065
  3. DISULFIRAM [Suspect]
     Indication: ALCOHOLISM
     Dosage: UNK, UNKNOWN
     Route: 065

REACTIONS (2)
  - ALCOHOL INTERACTION [None]
  - KETOACIDOSIS [None]
